FAERS Safety Report 8067310-0 (Version None)
Quarter: 2012Q1

REPORT INFORMATION
  Report Type: 
  Country: None (occurrence: None)
  Receive Date: 20120124
  Receipt Date: 20120120
  Transmission Date: 20120608
  Serious: Yes (Hospitalization)
  Sender: FDA-Public Use
  Company Number: US-GLAXOSMITHKLINE-B0715666A

PATIENT
  Age: 42 Year
  Sex: Female

DRUGS (1)
  1. AVANDIA [Suspect]
     Indication: DIABETES MELLITUS
     Dosage: 8MG TWICE PER DAY
     Route: 048
     Dates: start: 20020528

REACTIONS (6)
  - HEART RATE INCREASED [None]
  - WEIGHT INCREASED [None]
  - MYOCARDIAL INFARCTION [None]
  - HYPERTENSION [None]
  - OEDEMA PERIPHERAL [None]
  - JOINT SWELLING [None]
